FAERS Safety Report 5421102-7 (Version None)
Quarter: 2007Q3

REPORT INFORMATION
  Report Type: 
  Country: None (occurrence: None)
  Receive Date: 20070821
  Receipt Date: 20070813
  Transmission Date: 20080115
  Serious: Yes (Hospitalization)
  Sender: FDA-Public Use
  Company Number: SE-JNJFOC-20070803698

PATIENT
  Age: 14 Year
  Sex: Female

DRUGS (2)
  1. CONCERTA [Suspect]
  2. CONCERTA [Suspect]
     Indication: DRUG USE FOR UNKNOWN INDICATION
     Dosage: TOOK 9 TABLETS OF 36MG (324MG) AT ONCE

REACTIONS (6)
  - DRUG ADMINISTRATION ERROR [None]
  - EYE PAIN [None]
  - MYALGIA [None]
  - OVERDOSE [None]
  - PAIN IN JAW [None]
  - TACHYCARDIA [None]
